FAERS Safety Report 26210698 (Version 1)
Quarter: 2025Q4

REPORT INFORMATION
  Report Type: Spontaneous
  Country: US (occurrence: US)
  Receive Date: 20251230
  Receipt Date: 20251230
  Transmission Date: 20260118
  Serious: No
  Sender: Kenvue
  Company Number: US-KENVUE-20251201734

PATIENT

DRUGS (1)
  1. TYLENOL 8 HR ARTHRITIS PAIN [Suspect]
     Active Substance: ACETAMINOPHEN
     Indication: Pain
     Dosage: TWO TABLETS IN THE MORNING AND TWO IN THE AFTERNOON
     Route: 065

REACTIONS (1)
  - Inappropriate schedule of product administration [Unknown]
